FAERS Safety Report 21617027 (Version 1)
Quarter: 2022Q4

REPORT INFORMATION
  Report Type: Spontaneous
  Country: KR (occurrence: KR)
  Receive Date: 20221118
  Receipt Date: 20221118
  Transmission Date: 20230113
  Serious: Yes (Other)
  Sender: FDA-Public Use
  Company Number: KR-BAYER-2022A159357

PATIENT
  Sex: Male

DRUGS (1)
  1. LAROTRECTINIB [Suspect]
     Active Substance: LAROTRECTINIB
     Indication: Colon cancer
     Dates: start: 20220119, end: 20220627

REACTIONS (1)
  - Colon cancer [None]

NARRATIVE: CASE EVENT DATE: 20220627
